FAERS Safety Report 4490013-6 (Version None)
Quarter: 2004Q4

REPORT INFORMATION
  Report Type: 
  Country: None (occurrence: None)
  Receive Date: 20041028
  Receipt Date: 20041001
  Transmission Date: 20050328
  Serious: Yes (Other)
  Sender: FDA-Public Use
  Company Number: 2004-CN-00348CN

PATIENT
  Sex: Female

DRUGS (13)
  1. SPIRIVA [Suspect]
     Dosage: (18 MCG) IH
     Route: 055
  2. VASOTEC [Concomitant]
  3. PROVERA [Concomitant]
  4. CALCIUM [Concomitant]
  5. VITAMIN D [Concomitant]
  6. FLONASE [Concomitant]
  7. SYNTHROID [Concomitant]
  8. PREMARIN [Concomitant]
  9. ADVAIR (SERETIDE MITE) [Concomitant]
  10. BRICANYL [Concomitant]
  11. PANTOPRAZOLE SODIUM [Concomitant]
  12. ALDACTONE [Concomitant]
  13. VASOTEC [Concomitant]

REACTIONS (2)
  - DRUG INEFFECTIVE [None]
  - PHARMACEUTICAL PRODUCT COMPLAINT [None]
